FAERS Safety Report 22291726 (Version 1)
Quarter: 2023Q2

REPORT INFORMATION
  Report Type: Spontaneous
  Country: US (occurrence: None)
  Receive Date: 20230505
  Receipt Date: 20230505
  Transmission Date: 20230722
  Serious: Yes (Disabling, Other)
  Sender: FDA-Public Use
  Company Number: None

PATIENT
  Age: 39 Year
  Sex: Female
  Weight: 90 kg

DRUGS (2)
  1. DUPIXENT [Suspect]
     Active Substance: DUPILUMAB
     Indication: Eczema
     Dates: start: 20230421, end: 20230421
  2. LEXAPRO [Concomitant]
     Active Substance: ESCITALOPRAM OXALATE

REACTIONS (7)
  - Swelling of eyelid [None]
  - Rash [None]
  - Capillary fragility [None]
  - Arthralgia [None]
  - Vomiting [None]
  - Pyrexia [None]
  - Bedridden [None]

NARRATIVE: CASE EVENT DATE: 20230501
